FAERS Safety Report 5386014-6 (Version None)
Quarter: 2007Q3

REPORT INFORMATION
  Report Type: 
  Country: None (occurrence: None)
  Receive Date: 20070710
  Receipt Date: 20070627
  Transmission Date: 20080115
  Serious: Yes (Hospitalization)
  Sender: FDA-Public Use
  Company Number: OMPQ-NO-0706S-0651

PATIENT
  Age: 53 Year
  Sex: Male

DRUGS (14)
  1. OMNIPAQUE 140 [Suspect]
     Indication: DRUG USE FOR UNKNOWN INDICATION
     Dosage: SINGLE DOSE, I.V.
     Route: 042
     Dates: start: 20070308, end: 20070308
  2. GEMZAR [Concomitant]
  3. GASTROGRAFIN [Concomitant]
  4. ATARAX [Concomitant]
  5. OMEPRAZOL ARROW [Concomitant]
  6. DICLOFENAC SODIUM (DIKLOFENAK BMM PHARMA) [Concomitant]
  7. PARACETAMOL (ALVEDON) [Concomitant]
  8. SODIUM PICOSULFATE (LAXOBERAL) [Concomitant]
  9. MORPHINE (MORFIN MEDA) [Concomitant]
  10. PREDNISOLON (PFIZER) [Concomitant]
  11. LAKTUOLOS MIXTURE [Concomitant]
  12. MORPHINE SULFATE (DOLCONTIN) [Concomitant]
  13. LOCOBASE CREME [Concomitant]
  14. CEFADROXIL [Concomitant]

REACTIONS (2)
  - SKIN NECROSIS [None]
  - VASCULITIS [None]
